FAERS Safety Report 18394262 (Version 1)
Quarter: 2020Q4

REPORT INFORMATION
  Report Type: Report from Study
  Country: US (occurrence: US)
  Receive Date: 20201016
  Receipt Date: 20201016
  Transmission Date: 20210114
  Serious: Yes (Hospitalization, Other)
  Sender: FDA-Public Use
  Company Number: US-BAYER-2020-221693

PATIENT
  Age: 46 Year
  Sex: Female
  Weight: 125.17 kg

DRUGS (4)
  1. ADEMPAS [Suspect]
     Active Substance: RIOCIGUAT
     Indication: PULMONARY ARTERIAL HYPERTENSION
     Dosage: 1.5 MG, TID
     Route: 048
     Dates: start: 20200921
  2. ADEMPAS [Suspect]
     Active Substance: RIOCIGUAT
     Indication: PULMONARY ARTERIAL HYPERTENSION
     Dosage: 1 AND A HALF TABLETS OF ADEMPAS 1.5 MG TABLETS FOR A TOTAL OF 2.25 MGS THREE TIMES DAILY
     Dates: start: 2020
  3. ADEMPAS [Suspect]
     Active Substance: RIOCIGUAT
     Indication: PULMONARY ARTERIAL HYPERTENSION
     Dosage: UNK
  4. WARFARIN [Concomitant]
     Active Substance: WARFARIN
     Dosage: UNK

REACTIONS (4)
  - Syncope [None]
  - Wrong technique in product usage process [None]
  - Hospitalisation [None]
  - Product prescribing issue [None]

NARRATIVE: CASE EVENT DATE: 20201002
